FAERS Safety Report 16263632 (Version 3)
Quarter: 2019Q3

REPORT INFORMATION
  Report Type: Report from Study
  Country: EG (occurrence: EG)
  Receive Date: 20190502
  Receipt Date: 20190717
  Transmission Date: 20191004
  Serious: Yes (Hospitalization, Other)
  Sender: FDA-Public Use
  Company Number: PHHY2019EG097095

PATIENT
  Age: 68 Year
  Sex: Female

DRUGS (8)
  1. FASLODEX [Concomitant]
     Active Substance: FULVESTRANT
     Indication: PRODUCT USED FOR UNKNOWN INDICATION
     Dosage: 2 DF, QMO (FIRST MONTH 3 INJECTIONS)
     Route: 065
  2. GALVUS MET [Concomitant]
     Active Substance: METFORMIN HYDROCHLORIDE\VILDAGLIPTIN
     Indication: DIABETES MELLITUS
     Dosage: 2 DF, QD
     Route: 065
  3. KISQALI [Suspect]
     Active Substance: RIBOCICLIB
     Dosage: 400 MG, QD
     Route: 048
     Dates: start: 20190422
  4. UNOCRON [Concomitant]
     Indication: DIABETES MELLITUS
     Dosage: 60 MG, QD
     Route: 065
  5. KISQALI [Suspect]
     Active Substance: RIBOCICLIB
     Indication: BREAST CANCER
     Dosage: 600 MG, QD
     Route: 048
     Dates: start: 20190325
  6. EXFORGE [Concomitant]
     Active Substance: AMLODIPINE BESYLATE\VALSARTAN
     Indication: HYPERTENSION
     Dosage: 1 DF, QD (10/160)
     Route: 065
  7. CONCOR [Concomitant]
     Active Substance: BISOPROLOL FUMARATE
     Indication: HYPERTENSION
     Dosage: 5 MG, QD
     Route: 065
  8. OMEGA 3 [Concomitant]
     Active Substance: OMEGA-3 FATTY ACIDS
     Indication: PRODUCT USED FOR UNKNOWN INDICATION
     Dosage: 1 DF, QD (ONE TABLET/DAY)
     Route: 065

REACTIONS (23)
  - Diabetes mellitus [Recovering/Resolving]
  - Diarrhoea [Recovering/Resolving]
  - Fatigue [Recovering/Resolving]
  - Dehydration [Recovered/Resolved]
  - Back pain [Recovering/Resolving]
  - Blood urea increased [Recovering/Resolving]
  - Fluid intake reduced [Recovering/Resolving]
  - Musculoskeletal chest pain [Recovered/Resolved]
  - Haemoglobin decreased [Recovering/Resolving]
  - Dysgeusia [Not Recovered/Not Resolved]
  - Nausea [Recovered/Resolved]
  - Metastases to lymph nodes [Unknown]
  - Decreased appetite [Recovering/Resolving]
  - White blood cell count decreased [Recovering/Resolving]
  - Hypotension [Recovering/Resolving]
  - Metastases to pleura [Unknown]
  - Dehydration [Recovering/Resolving]
  - Nausea [Recovering/Resolving]
  - Fatigue [Recovered/Resolved]
  - Back pain [Recovered/Resolved]
  - Blood creatinine increased [Recovering/Resolving]
  - Decreased appetite [Recovered/Resolved]
  - Musculoskeletal chest pain [Recovering/Resolving]

NARRATIVE: CASE EVENT DATE: 2019
